FAERS Safety Report 26042789 (Version 1)
Quarter: 2025Q4

REPORT INFORMATION
  Report Type: Spontaneous
  Country: EU (occurrence: EU)
  Receive Date: 20251113
  Receipt Date: 20251113
  Transmission Date: 20260118
  Serious: Yes (Hospitalization)
  Sender: ALEXION PHARMACEUTICALS
  Company Number: EU-AstraZeneca-CH-00988114A

PATIENT
  Sex: Male

DRUGS (4)
  1. ASFOTASE ALFA [Suspect]
     Active Substance: ASFOTASE ALFA
     Indication: Hypophosphatasia
     Dosage: 40 MILLIGRAM, INTERMITTENT
  2. ASFOTASE ALFA [Suspect]
     Active Substance: ASFOTASE ALFA
     Dosage: 40 MG 7X/WEEK
  3. ASFOTASE ALFA [Suspect]
     Active Substance: ASFOTASE ALFA
     Dosage: 40 MILLIGRAM, Q3W
     Dates: start: 201804
  4. ASFOTASE ALFA [Suspect]
     Active Substance: ASFOTASE ALFA
     Dosage: 40 MILLIGRAM, SIX TIMES/WEEK
     Dates: start: 2019

REACTIONS (8)
  - Erysipelas [Unknown]
  - Arthralgia [Unknown]
  - Joint swelling [Unknown]
  - Erythema [Unknown]
  - Hyperthermia [Unknown]
  - Stress fracture [Unknown]
  - Product dose omission issue [Unknown]
  - Off label use [Unknown]

NARRATIVE: CASE EVENT DATE: 20190101
